FAERS Safety Report 24565551 (Version 1)
Quarter: 2024Q4

REPORT INFORMATION
  Report Type: Spontaneous
  Country: US (occurrence: None)
  Receive Date: 20241029
  Receipt Date: 20241029
  Transmission Date: 20250114
  Serious: Yes (Death)
  Sender: Public
  Company Number: None

PATIENT
  Sex: Female
  Weight: 100.2 kg

DRUGS (2)
  1. TRABECTEDIN [Suspect]
     Active Substance: TRABECTEDIN
     Indication: Myxoid liposarcoma
     Dates: start: 20240903, end: 20240924
  2. TRABECTEDIN [Suspect]
     Active Substance: TRABECTEDIN
     Indication: Breast cancer

REACTIONS (4)
  - Acute kidney injury [None]
  - Hepatic failure [None]
  - Hyponatraemia [None]
  - Pyrexia [None]
